FAERS Safety Report 7339979-7 (Version None)
Quarter: 2011Q1

REPORT INFORMATION
  Report Type: 
  Country: None (occurrence: None)
  Receive Date: 20110309
  Receipt Date: 20110302
  Transmission Date: 20110831
  Serious: No
  Sender: FDA-Public Use
  Company Number: US-PFIZER INC-2011023506

PATIENT
  Sex: Female
  Weight: 70.295 kg

DRUGS (3)
  1. CYCLOSPORINE [Concomitant]
     Indication: SJOGREN'S SYNDROME
     Dosage: UNK
  2. ADVIL [Suspect]
     Indication: SLEEP DISORDER
     Dosage: 200 MG, UNK
     Route: 048
     Dates: start: 20110101
  3. LIPITOR [Concomitant]
     Indication: BLOOD CHOLESTEROL INCREASED
     Dosage: UNK

REACTIONS (5)
  - DIARRHOEA [None]
  - NAUSEA [None]
  - DIZZINESS [None]
  - VOMITING [None]
  - INFLUENZA [None]
